FAERS Safety Report 24423739 (Version 2)
Quarter: 2024Q4

REPORT INFORMATION
  Report Type: Spontaneous
  Country: US (occurrence: US)
  Receive Date: 20241010
  Receipt Date: 20241104
  Transmission Date: 20250115
  Serious: Yes (Hospitalization)
  Sender: FRESENIUS KABI
  Company Number: US-FreseniusKabi-FK202414890

PATIENT
  Age: 19 Year
  Sex: Female
  Weight: 36 kg

DRUGS (5)
  1. OMEGAVEN [Suspect]
     Active Substance: FISH OIL
     Indication: Liver function test increased
     Dosage: FORM OF ADMINISTRATION: INJECTABLE EMULSION FOR INFUSION?TRANSFERRING 5 OF THE 10 MG BOTTLE INTO A B
     Route: 042
  2. SMOFLIPID [Suspect]
     Active Substance: FISH OIL\MEDIUM-CHAIN TRIGLYCERIDES\OLIVE OIL\SOYBEAN OIL
     Indication: Nutritional supplementation
     Dosage: FORM OF ADMINISTRATION: INJECTABLE EMULSION FOR INFUSION?ROUTE OF ADMINISTRATION: IV (VIA HICKMAN CA
     Route: 042
     Dates: start: 202305, end: 20230704
  3. SMOFLIPID [Suspect]
     Active Substance: FISH OIL\MEDIUM-CHAIN TRIGLYCERIDES\OLIVE OIL\SOYBEAN OIL
     Dosage: FORM OF ADMINISTRATION: INJECTABLE EMULSION?ROUTE OF ADMINISTRATION: IV (VIA HICKMAN CATHETER)
     Route: 042
     Dates: start: 20230804, end: 20231003
  4. SMOFLIPID [Suspect]
     Active Substance: FISH OIL\MEDIUM-CHAIN TRIGLYCERIDES\OLIVE OIL\SOYBEAN OIL
     Dosage: FORM OF ADMINISTRATION: INJECTABLE EMULSION?ROUTE OF ADMINISTRATION: IV (VIA HICKMAN CATHETER)
     Route: 042
     Dates: start: 20231206, end: 20231214
  5. BENADRYL [Concomitant]
     Active Substance: DIPHENHYDRAMINE HYDROCHLORIDE
     Indication: Mast cell activation syndrome
     Dosage: CONTINUOUS IV BENADRYL (UNKNOWN MANUFACTURER) 24 HR/DAY TO HELP WITH MAST CELL ACTIVATION SYNDROME-S
     Route: 042
     Dates: start: 202208

REACTIONS (13)
  - Bacterial infection [Recovered/Resolved]
  - Weight decreased [Unknown]
  - Weight gain poor [Unknown]
  - Nausea [Not Recovered/Not Resolved]
  - Musculoskeletal chest pain [Not Recovered/Not Resolved]
  - Pruritus [Not Recovered/Not Resolved]
  - Agitation [Not Recovered/Not Resolved]
  - Flushing [Not Recovered/Not Resolved]
  - Pharyngeal swelling [Not Recovered/Not Resolved]
  - Cholelithiasis [Unknown]
  - Malnutrition [Not Recovered/Not Resolved]
  - Off label use [Unknown]
  - Feeling hot [Not Recovered/Not Resolved]

NARRATIVE: CASE EVENT DATE: 20230701
